FAERS Safety Report 9029425 (Version 2)
Quarter: 2013Q1

REPORT INFORMATION
  Report Type: Spontaneous
  Country: JP (occurrence: JP)
  Receive Date: 20130125
  Receipt Date: 20130205
  Transmission Date: 20140127
  Serious: Yes (Life-Threatening)
  Sender: FDA-Public Use
  Company Number: JP-PFIZER INC-2013030158

PATIENT
  Age: 18 Year
  Sex: Male
  Weight: 25 kg

DRUGS (13)
  1. ZOSYN [Suspect]
     Indication: PNEUMONIA ASPIRATION
     Dosage: 2.25 MG, 3X/DAY
     Route: 041
     Dates: start: 20130107, end: 20130111
  2. DEPAKENE [Concomitant]
     Route: 048
  3. PHENOBAL [Concomitant]
  4. MYSTAN [Concomitant]
     Indication: EPILEPSY
     Dosage: 9 MG, DAY
     Route: 048
  5. EXCEGRAN [Concomitant]
     Indication: EPILEPSY
     Dosage: 200 MG, DAY
     Route: 048
  6. TRICLORYL [Concomitant]
     Indication: EPILEPSY
     Dosage: 10 ML, DAY
     Route: 048
  7. SINGULAIR [Concomitant]
     Indication: ASTHMA
     Dosage: 5 MG, DAY
     Route: 048
  8. MUCODYNE [Concomitant]
     Indication: UPPER RESPIRATORY TRACT INFLAMMATION
     Dosage: 500 MG, DAY
     Route: 048
  9. TAKEPRON [Concomitant]
     Indication: GASTROOESOPHAGEAL REFLUX DISEASE
     Dosage: 6 MG, DAY
     Route: 048
  10. RIKKUNSHINTO [Concomitant]
     Indication: GASTROOESOPHAGEAL REFLUX DISEASE
     Dosage: 5.2 G, DAY
     Route: 048
  11. BIOFERMIN R [Concomitant]
     Indication: GASTROENTERITIS
     Dosage: 3 G, DAY
     Route: 048
  12. GASMOTIN [Concomitant]
     Indication: GASTROOESOPHAGEAL REFLUX DISEASE
     Dosage: 5.0 MG, DAY
     Route: 048
  13. CEREB [Concomitant]
     Indication: EPILEPSY
     Dosage: 300?600 MG, DAY
     Route: 048
     Dates: end: 20130111

REACTIONS (1)
  - Vitamin K deficiency [Recovered/Resolved]
